FAERS Safety Report 14404159 (Version 2)
Quarter: 2018Q2

REPORT INFORMATION
  Report Type: Report from Study
  Country: US (occurrence: US)
  Receive Date: 20180117
  Receipt Date: 20180423
  Transmission Date: 20180711
  Serious: Yes (Death, Hospitalization, Other)
  Sender: FDA-Public Use
  Company Number: US-SHIRE-US201800595

PATIENT
  Age: 67 Year
  Sex: Male

DRUGS (1)
  1. ALFA 1-ANTITRYPSIN [Suspect]
     Active Substance: .ALPHA.1-PROTEINASE INHIBITOR HUMAN
     Indication: ALPHA-1 ANTI-TRYPSIN DEFICIENCY
     Dosage: UNK, 1X/WEEK
     Route: 050

REACTIONS (2)
  - Pneumonia [Not Recovered/Not Resolved]
  - Respiratory disorder [Fatal]

NARRATIVE: CASE EVENT DATE: 20180106
